FAERS Safety Report 13614100 (Version 2)
Quarter: 2020Q2

REPORT INFORMATION
  Report Type: Report from Study
  Country: US (occurrence: US)
  Receive Date: 20170606
  Receipt Date: 20200529
  Transmission Date: 20200713
  Serious: Yes (Other)
  Sender: FDA-Public Use
  Company Number: US-BRISTOL-MYERS SQUIBB COMPANY-BMS-2017-048985

PATIENT
  Sex: Female

DRUGS (3)
  1. ENOXAPARIN [Concomitant]
     Active Substance: ENOXAPARIN
     Indication: PRODUCT USED FOR UNKNOWN INDICATION
     Dosage: UNK
     Route: 065
     Dates: start: 20170518
  2. DASATINIB. [Suspect]
     Active Substance: DASATINIB
     Indication: THROMBOSIS
     Dosage: 2 TAB, QD
     Route: 048
     Dates: start: 20170315
  3. DASATINIB. [Suspect]
     Active Substance: DASATINIB
     Indication: EMBOLISM
     Route: 065

REACTIONS (5)
  - Abdominal pain upper [Unknown]
  - Intentional product use issue [Unknown]
  - Pain in extremity [Unknown]
  - Lumbar puncture [Unknown]
  - Back pain [Unknown]
